FAERS Safety Report 16632990 (Version 2)
Quarter: 2019Q3

REPORT INFORMATION
  Report Type: Spontaneous
  Country: US (occurrence: US)
  Receive Date: 20190725
  Receipt Date: 20190924
  Transmission Date: 20191004
  Serious: No
  Sender: FDA-Public Use
  Company Number: US-PFIZER INC-2019313640

PATIENT
  Age: 73 Year
  Sex: Female
  Weight: 74.38 kg

DRUGS (1)
  1. XELJANZ [Suspect]
     Active Substance: TOFACITINIB CITRATE
     Dosage: 5 MG, 2X/DAY (STARTED 5 YEARS AGO)

REACTIONS (1)
  - Laryngitis [Recovered/Resolved]
